FAERS Safety Report 5468398-3 (Version None)
Quarter: 2007Q3

REPORT INFORMATION
  Report Type: 
  Country: None (occurrence: None)
  Receive Date: 20070926
  Receipt Date: 20070914
  Transmission Date: 20080115
  Serious: Yes (Other)
  Sender: FDA-Public Use
  Company Number: DE-ROCHE-518126

PATIENT
  Age: 65 Year
  Sex: Female

DRUGS (1)
  1. BONIVA [Suspect]
     Indication: DRUG USE FOR UNKNOWN INDICATION
     Dosage: DRUG: BONVIVA 3 MG FORM: PRE-FILLED SYRINGE STRENGTH: 3 MG/3ML PATIENT RECEIVED HER THIRD QUARTERLY+
     Route: 042

REACTIONS (1)
  - RETINAL DISORDER [None]
